FAERS Safety Report 12558598 (Version 1)
Quarter: 2016Q3

REPORT INFORMATION
  Report Type: Other
  Country: TR (occurrence: TR)
  Receive Date: 20160714
  Receipt Date: 20160714
  Transmission Date: 20161109
  Serious: Yes (Hospitalization)
  Sender: FDA-Public Use
  Company Number: TR-LUPIN PHARMACEUTICALS INC.-2015-02858

PATIENT
  Age: 10 Year
  Sex: Female
  Weight: 26 kg

DRUGS (2)
  1. LAMOTRIGINE. [Suspect]
     Active Substance: LAMOTRIGINE
     Indication: SEIZURE
     Route: 065
  2. VALPROATE [Concomitant]
     Active Substance: VALPROIC ACID
     Indication: EPILEPSY
     Route: 065

REACTIONS (1)
  - Toxic epidermal necrolysis [Recovering/Resolving]
